FAERS Safety Report 13984604 (Version 1)
Quarter: 2017Q3

REPORT INFORMATION
  Report Type: Spontaneous
  Country: US (occurrence: US)
  Receive Date: 20170918
  Receipt Date: 20170918
  Transmission Date: 20171128
  Serious: No
  Sender: FDA-Public Use
  Company Number: US-BAYER-2017-178188

PATIENT
  Sex: Female

DRUGS (2)
  1. MIDOL EXTENDED RELIEF [Suspect]
     Active Substance: NAPROXEN SODIUM
     Indication: DYSMENORRHOEA
     Dosage: 3 DF, UNK (3HOURS)
     Dates: start: 20170914, end: 20170914
  2. MIDOL EXTENDED RELIEF [Suspect]
     Active Substance: NAPROXEN SODIUM
     Indication: DYSMENORRHOEA
     Dosage: 2 DF, PRN
     Route: 048

REACTIONS (2)
  - Product use issue [Not Recovered/Not Resolved]
  - Drug ineffective [None]
